FAERS Safety Report 22247027 (Version 1)
Quarter: 2023Q2

REPORT INFORMATION
  Report Type: Spontaneous
  Country: US (occurrence: US)
  Receive Date: 20230424
  Receipt Date: 20230424
  Transmission Date: 20230721
  Serious: No
  Sender: FDA-Public Use
  Company Number: US-SA-SAC20230414001361

PATIENT

DRUGS (1)
  1. LARONIDASE [Suspect]
     Active Substance: LARONIDASE
     Indication: Mucopolysaccharidosis I
     Dosage: UNK, QW
     Route: 042
     Dates: start: 20210720

REACTIONS (2)
  - Streptococcal infection [Recovering/Resolving]
  - Gastrostomy [Recovering/Resolving]

NARRATIVE: CASE EVENT DATE: 20230101
